FAERS Safety Report 14700599 (Version 2)
Quarter: 2018Q3

REPORT INFORMATION
  Report Type: Spontaneous
  Country: JP (occurrence: JP)
  Receive Date: 20180330
  Receipt Date: 20180705
  Transmission Date: 20181010
  Serious: Yes (Hospitalization)
  Sender: FDA-Public Use
  Company Number: PHJP2018JP007061

PATIENT

DRUGS (2)
  1. GLIVEC [Suspect]
     Active Substance: IMATINIB MESYLATE
     Dosage: 300 MG, TID
     Route: 048
     Dates: start: 20180316, end: 20180323
  2. GLIVEC [Suspect]
     Active Substance: IMATINIB MESYLATE
     Indication: GASTROINTESTINAL STROMAL TUMOUR
     Dosage: 300 MG, QD
     Route: 048

REACTIONS (4)
  - Overdose [Unknown]
  - Nausea [Unknown]
  - Thirst [Unknown]
  - Malaise [Unknown]
